FAERS Safety Report 8608285-2 (Version None)
Quarter: 2012Q3

REPORT INFORMATION
  Report Type: 
  Country: None (occurrence: None)
  Receive Date: 20120809
  Receipt Date: 20120809
  Transmission Date: 20120928
  Serious: Yes (Death)
  Sender: FDA-Public Use
  Company Number: None

PATIENT
  Age: 13 Year
  Sex: Male

DRUGS (8)
  1. LETAIRIS [Suspect]
     Indication: PULMONARY HYPERTENSION
     Dosage: 5 MG DAILY BY MOUTH
     Route: 048
     Dates: start: 20120601, end: 20120701
  2. ASCORBIC ACID [Concomitant]
  3. SILDENAFIL [Concomitant]
  4. TREPROSTINIL [Concomitant]
  5. FERROUS GLUCONATE [Concomitant]
  6. LORATADINE [Concomitant]
  7. M.V.I. [Concomitant]
  8. DIGOXIN [Concomitant]

REACTIONS (2)
  - HEMIPARESIS [None]
  - DYSARTHRIA [None]
